FAERS Safety Report 19209777 (Version 1)
Quarter: 2021Q2

REPORT INFORMATION
  Report Type: Spontaneous
  Country: US (occurrence: US)
  Receive Date: 20210504
  Receipt Date: 20210504
  Transmission Date: 20210717
  Serious: Yes (Death, Other)
  Sender: FDA-Public Use
  Company Number: US-AMGEN-USASP2021066129

PATIENT
  Age: 19 Year
  Sex: Female

DRUGS (4)
  1. THIOTEPA. [Concomitant]
     Active Substance: THIOTEPA
     Dosage: 900 MILLIGRAM/SQ. METER
  2. CYCLOPHOSPHAMIDE. [Concomitant]
     Active Substance: CYCLOPHOSPHAMIDE
     Dosage: 200 MICROGRAM/KILOGRAM
  3. FILGRASTIM [Suspect]
     Active Substance: FILGRASTIM
     Indication: NEUTROPENIA
     Dosage: UNK
     Route: 065
  4. ETOPOSIDE. [Concomitant]
     Active Substance: ETOPOSIDE
     Dosage: 1800 MILLIGRAM/SQ. METER

REACTIONS (3)
  - Pulmonary haemorrhage [Unknown]
  - Disseminated aspergillosis [Fatal]
  - Graft versus host disease [Unknown]
